FAERS Safety Report 7511417-0 (Version None)
Quarter: 2011Q2

REPORT INFORMATION
  Report Type: 
  Country: None (occurrence: None)
  Receive Date: 20110531
  Receipt Date: 20110517
  Transmission Date: 20111010
  Serious: Yes (Other)
  Sender: FDA-Public Use
  Company Number: PHHY2011BR43601

PATIENT
  Sex: Female

DRUGS (7)
  1. SOTACOR [Concomitant]
     Dosage: 120 MG, BID
     Route: 048
  2. DIOVAN HCT [Suspect]
     Indication: HYPERTENSION
     Dosage: 1 DF, A DAY  (160/12.5 MG)
     Route: 048
  3. PROZAC [Concomitant]
     Dosage: 20 MG, QD
  4. ISOFLURANE [Concomitant]
     Dosage: 150 MG, DAILY
     Route: 048
  5. SYNTHROID [Concomitant]
     Dosage: 112 MG, QD
     Route: 048
  6. DIOSMIN [Concomitant]
     Dosage: 500 MG, UNK
     Route: 048
  7. FLUOXETINE [Concomitant]
     Dosage: 40 MG, QD
     Route: 048

REACTIONS (6)
  - URINARY TRACT INFECTION [None]
  - NEPHROLITHIASIS [None]
  - DIABETES MELLITUS [None]
  - PYREXIA [None]
  - RENAL COLIC [None]
  - ASTHENIA [None]
